FAERS Safety Report 6465285-9 (Version None)
Quarter: 2009Q4

REPORT INFORMATION
  Report Type: 
  Country: None (occurrence: None)
  Receive Date: 20091201
  Receipt Date: 20090305
  Transmission Date: 20100525
  Serious: No
  Sender: FDA-Public Use
  Company Number: US-AMGEN-KDL209289

PATIENT
  Sex: Female

DRUGS (6)
  1. ENBREL [Suspect]
     Indication: RHEUMATOID ARTHRITIS
     Route: 058
     Dates: start: 20040907, end: 20090123
  2. ENBREL [Suspect]
     Indication: PSORIASIS
  3. METHOTREXATE [Concomitant]
     Route: 048
     Dates: start: 20040607
  4. ALEVE [Concomitant]
  5. DIOVAN [Concomitant]
  6. TOPROL-XL [Concomitant]

REACTIONS (4)
  - BLISTER [None]
  - BRONCHITIS [None]
  - HYPERCALCAEMIA [None]
  - URTICARIA [None]
